FAERS Safety Report 9005161 (Version 1)
Quarter: 2013Q1

REPORT INFORMATION
  Report Type: Spontaneous
  Country: US (occurrence: None)
  Receive Date: 20130107
  Receipt Date: 20130107
  Transmission Date: 20140127
  Serious: No
  Sender: FDA-Public Use
  Company Number: None

PATIENT
  Age: 16 Year
  Sex: Male
  Weight: 87.54 kg

DRUGS (1)
  1. ADDERALL XR [Suspect]
     Dosage: 30MG (2) QD PO
     Route: 048
     Dates: start: 200904

REACTIONS (2)
  - Drug ineffective [None]
  - Impulsive behaviour [None]
